FAERS Safety Report 4724630-2 (Version None)
Quarter: 2005Q3

REPORT INFORMATION
  Report Type: 
  Country: None (occurrence: None)
  Receive Date: 20050722
  Receipt Date: 20050707
  Transmission Date: 20060218
  Serious: Yes (Other)
  Sender: FDA-Public Use
  Company Number: 2005BI009010

PATIENT
  Age: 56 Year
  Sex: Female

DRUGS (5)
  1. AVONEX [Suspect]
     Indication: MULTIPLE SCLEROSIS
     Dosage: IM
     Route: 030
     Dates: start: 19970101
  2. PRINIVIL [Concomitant]
  3. ACETYLSALICYLIC ACID SRT [Concomitant]
  4. QVAR (BECLOMETASONE DIPROPIONATE) [Concomitant]
  5. SPIRIVA [Concomitant]

REACTIONS (2)
  - MITRAL VALVE PROLAPSE [None]
  - MITRAL VALVE STENOSIS [None]
